FAERS Safety Report 6678879-2 (Version None)
Quarter: 2010Q2

REPORT INFORMATION
  Report Type: 
  Country: None (occurrence: None)
  Receive Date: 20100413
  Receipt Date: 20100408
  Transmission Date: 20101027
  Serious: Yes (Other)
  Sender: FDA-Public Use
  Company Number: GR-BRISTOL-MYERS SQUIBB COMPANY-15053549

PATIENT
  Age: 74 Year
  Sex: Male

DRUGS (7)
  1. ORENCIA [Suspect]
     Indication: RHEUMATOID ARTHRITIS
     Route: 042
     Dates: start: 20100108, end: 20100305
  2. METHOTREXATE [Concomitant]
  3. PREZOLON [Concomitant]
  4. AMIODARONE HCL [Concomitant]
  5. LIPITOR [Concomitant]
  6. LOSEC [Concomitant]
  7. SINTROM [Concomitant]

REACTIONS (1)
  - HEPATITIS B [None]
